FAERS Safety Report 7367500-6 (Version None)
Quarter: 2011Q1

REPORT INFORMATION
  Report Type: 
  Country: None (occurrence: None)
  Receive Date: 20110311
  Receipt Date: 20110225
  Transmission Date: 20110831
  Serious: Yes (Hospitalization)
  Sender: FDA-Public Use
  Company Number: 2011MA001854

PATIENT
  Age: 61 Year
  Sex: Male

DRUGS (1)
  1. HALOPERIDOL LACTATE [Suspect]
     Indication: AGGRESSION
     Dosage: 15 MG;IM
     Route: 030

REACTIONS (5)
  - RHABDOMYOLYSIS [None]
  - PSYCHOTIC DISORDER [None]
  - NEUROLEPTIC MALIGNANT SYNDROME [None]
  - AGGRESSION [None]
  - MANIA [None]
